FAERS Safety Report 21880612 (Version 1)
Quarter: 2023Q1

REPORT INFORMATION
  Report Type: Spontaneous
  Country: US (occurrence: US)
  Receive Date: 20230118
  Receipt Date: 20230118
  Transmission Date: 20230417
  Serious: Yes (Other)
  Sender: FDA-Public Use
  Company Number: US-PFIZER INC-202101656321

PATIENT
  Age: 71 Year
  Sex: Female

DRUGS (3)
  1. IBRANCE [Suspect]
     Active Substance: PALBOCICLIB
     Indication: Breast cancer metastatic
     Dosage: 75 MG
     Dates: start: 202011
  2. IBRANCE [Suspect]
     Active Substance: PALBOCICLIB
     Dosage: 125 MG
  3. LETROZOLE [Concomitant]
     Active Substance: LETROZOLE
     Dosage: UNK
     Dates: start: 202011

REACTIONS (15)
  - Thrombocytopenia [Recovered/Resolved]
  - Leukopenia [Recovering/Resolving]
  - Pancytopenia [Unknown]
  - Cataract operation [Unknown]
  - Iron deficiency anaemia [Recovering/Resolving]
  - Fatigue [Unknown]
  - Hypophosphataemia [Unknown]
  - White blood cell count decreased [Unknown]
  - Hypocalcaemia [Unknown]
  - Aortic dilatation [Unknown]
  - Cardiac murmur [Unknown]
  - Epistaxis [Recovered/Resolved]
  - Lymphadenopathy [Unknown]
  - Magnetic resonance imaging head abnormal [Unknown]
  - Kyphosis [Unknown]

NARRATIVE: CASE EVENT DATE: 20210209
